FAERS Safety Report 18608503 (Version 1)
Quarter: 2020Q4

REPORT INFORMATION
  Report Type: Spontaneous
  Country: FR (occurrence: FR)
  Receive Date: 20201212
  Receipt Date: 20201212
  Transmission Date: 20210114
  Serious: Yes (Hospitalization)
  Sender: FDA-Public Use
  Company Number: FR-ROCHE-2729777

PATIENT
  Age: 44 Year
  Sex: Female

DRUGS (3)
  1. NOZINAN [Suspect]
     Active Substance: LEVOMEPROMAZINE
     Route: 048
  2. DIAZEPAM. [Suspect]
     Active Substance: DIAZEPAM
     Indication: ANXIETY
     Route: 048
  3. NOZINAN [Suspect]
     Active Substance: LEVOMEPROMAZINE
     Indication: DEPRESSION
     Route: 048

REACTIONS (4)
  - Respiratory acidosis [Recovered/Resolved]
  - Hypoventilation [Recovered/Resolved]
  - Overdose [Unknown]
  - Somnolence [Recovered/Resolved]

NARRATIVE: CASE EVENT DATE: 20200930
